FAERS Safety Report 23041322 (Version 1)
Quarter: 2023Q4

REPORT INFORMATION
  Report Type: Report from Study
  Country: MX (occurrence: MX)
  Receive Date: 20231007
  Receipt Date: 20231007
  Transmission Date: 20240109
  Serious: Yes (Other)
  Sender: FDA-Public Use
  Company Number: MX-002147023-NVSC2023MX134895

PATIENT
  Sex: Female

DRUGS (1)
  1. IMATINIB [Suspect]
     Active Substance: IMATINIB
     Indication: Chronic myeloid leukaemia
     Dosage: UNK
     Route: 048

REACTIONS (14)
  - Suicidal ideation [Unknown]
  - Drug ineffective [Unknown]
  - Feeling of despair [Unknown]
  - Skin burning sensation [Unknown]
  - Hypersensitivity [Unknown]
  - Scratch [Unknown]
  - Acne [Unknown]
  - Dry skin [Unknown]
  - Abdominal distension [Unknown]
  - Alopecia [Unknown]
  - Urticaria [Unknown]
  - Pruritus [Unknown]
  - Visual impairment [Unknown]
  - Hypoacusis [Unknown]
